FAERS Safety Report 6577666-3 (Version None)
Quarter: 2010Q1

REPORT INFORMATION
  Report Type: 
  Country: None (occurrence: None)
  Receive Date: 20100211
  Receipt Date: 20100204
  Transmission Date: 20100710
  Serious: Yes (Hospitalization, Other)
  Sender: FDA-Public Use
  Company Number: PHHY2010BR06213

PATIENT
  Age: 35 Year
  Sex: Female
  Weight: 70 kg

DRUGS (3)
  1. TRILEPTAL [Suspect]
     Dosage: 30 TABLETS, ONCE/SINGLE
     Route: 048
     Dates: start: 20100204
  2. CLONAZEPAM [Suspect]
     Dosage: 4 TABLETS AT ONCE
     Route: 048
     Dates: start: 20100204
  3. COCAINE [Suspect]

REACTIONS (4)
  - HEADACHE [None]
  - SOMNOLENCE [None]
  - SUICIDE ATTEMPT [None]
  - TACHYCARDIA [None]
